FAERS Safety Report 13831837 (Version 1)
Quarter: 2017Q3

REPORT INFORMATION
  Report Type: Spontaneous
  Country: US (occurrence: US)
  Receive Date: 20170803
  Receipt Date: 20170803
  Transmission Date: 20171127
  Serious: No
  Sender: FDA-Public Use
  Company Number: US-ROCHE-678983

PATIENT
  Age: 52 Year
  Sex: Female

DRUGS (1)
  1. BONIVA [Suspect]
     Active Substance: IBANDRONATE SODIUM
     Indication: PRODUCT USED FOR UNKNOWN INDICATION
     Dosage: FORM REPORTED AS PILL.
     Route: 048

REACTIONS (6)
  - Asthenia [Unknown]
  - Neck pain [Recovering/Resolving]
  - Abdominal pain upper [Recovering/Resolving]
  - Spinal pain [Recovering/Resolving]
  - Myalgia [Recovering/Resolving]
  - Pain [Unknown]
